FAERS Safety Report 13095843 (Version 1)
Quarter: 2017Q1

REPORT INFORMATION
  Report Type: Spontaneous
  Country: US (occurrence: US)
  Receive Date: 20170109
  Receipt Date: 20170109
  Transmission Date: 20170428
  Serious: Yes (Other)
  Sender: FDA-Public Use
  Company Number: US-ROCHE-1875107

PATIENT
  Sex: Female

DRUGS (1)
  1. ACTEMRA [Suspect]
     Active Substance: TOCILIZUMAB
     Indication: PRODUCT USED FOR UNKNOWN INDICATION
     Route: 042

REACTIONS (9)
  - Vomiting [Unknown]
  - Aspiration [Unknown]
  - Hypotonia [Unknown]
  - Speech disorder [Unknown]
  - Confusional state [Unknown]
  - Depressed level of consciousness [Unknown]
  - Pyrexia [Unknown]
  - Eye swelling [Unknown]
  - Cerebral disorder [Unknown]
